FAERS Safety Report 5225683-8 (Version None)
Quarter: 2007Q1

REPORT INFORMATION
  Report Type: 
  Country: None (occurrence: None)
  Receive Date: 20061201
  Receipt Date: 20061020
  Transmission Date: 20070707
  Serious: No
  Sender: FDA-Public Use
  Company Number: US200607002883

PATIENT
  Age: 61 Year
  Sex: Female

DRUGS (10)
  1. CYMBALTA [Suspect]
     Indication: DEPRESSION
     Dosage: 30 MG, DAILY (1/D)
     Dates: start: 20060707, end: 20060717
  2. CYMBALTA [Suspect]
     Dosage: 60 MG, DAILY (1/D)
     Dates: start: 20060718
  3. TRAZODONE HCL [Concomitant]
  4. ESTRACE [Concomitant]
  5. PROVERA [Concomitant]
  6. VITAMIN B COMPLEX (CALCIUM PANTOTHENATE, NICOTINAMIDE, PYRIDOXINE HYDR [Concomitant]
  7. VITAMIN E [Concomitant]
  8. CALCIUM MAGNESIUM ZINC (CALCIUM, MAGNESIUM ZINC) [Concomitant]
  9. COENZYME Q10 [Concomitant]
  10. GINKGO BILOBA (GINKGO BILOBA) [Concomitant]

REACTIONS (16)
  - ARTHROPOD BITE [None]
  - ASTHENIA [None]
  - CONSTIPATION [None]
  - CRYING [None]
  - DYSPHAGIA [None]
  - DYSURIA [None]
  - EYE SWELLING [None]
  - FACE OEDEMA [None]
  - LYMPH NODE PAIN [None]
  - LYMPHADENOPATHY [None]
  - MICTURITION DISORDER [None]
  - NAUSEA [None]
  - PHARYNGOLARYNGEAL PAIN [None]
  - SPLINTER [None]
  - THROAT TIGHTNESS [None]
  - VOMITING [None]
